FAERS Safety Report 6027887-3 (Version None)
Quarter: 2009Q1

REPORT INFORMATION
  Report Type: 
  Country: None (occurrence: None)
  Receive Date: 20090105
  Receipt Date: 20081203
  Transmission Date: 20090719
  Serious: Yes (Hospitalization)
  Sender: FDA-Public Use
  Company Number: KR-PFIZER INC-2008094261

PATIENT

DRUGS (6)
  1. AMLODIPINE BESYLATE [Suspect]
     Route: 048
     Dates: start: 20040412
  2. DOXAZOSIN MESYLATE [Suspect]
     Indication: HYPERTENSION
     Route: 048
     Dates: start: 20041129
  3. HYDROCHLOROTHIAZIDE [Suspect]
     Indication: HYPERTENSION
     Route: 048
     Dates: start: 20040412
  4. BETAXOLOL HYDROCHLORIDE [Suspect]
     Indication: HYPERTENSION
     Route: 048
     Dates: start: 20040412
  5. RAMIPRIL [Suspect]
     Indication: HYPERTENSION
     Route: 048
     Dates: start: 20080607
  6. ASPIRIN [Concomitant]
     Dosage: 100MG
     Route: 048
     Dates: start: 20040412

REACTIONS (1)
  - FACIAL PALSY [None]
